FAERS Safety Report 24770492 (Version 1)
Quarter: 2024Q4

REPORT INFORMATION
  Report Type: Spontaneous
  Country: US (occurrence: US)
  Receive Date: 20241224
  Receipt Date: 20241224
  Transmission Date: 20250115
  Serious: Yes (Other)
  Sender: RANBAXY
  Company Number: US-SUN PHARMACEUTICAL INDUSTRIES LTD-2024R1-485996

PATIENT
  Age: 29 Week
  Sex: Female
  Weight: 2.7 kg

DRUGS (3)
  1. ATENOLOL [Suspect]
     Active Substance: ATENOLOL
     Indication: Arrhythmia supraventricular
     Dosage: UNK
     Route: 065
  2. MEXILETINE [Suspect]
     Active Substance: MEXILETINE
     Indication: Arrhythmia supraventricular
     Dosage: 1.5 MILLIGRAM/KILOGRAM, EVERY 8 H
     Route: 065
  3. MEXILETINE [Suspect]
     Active Substance: MEXILETINE
     Dosage: 4 MILLIGRAM/KILOGRAM
     Route: 065

REACTIONS (1)
  - Torsade de pointes [Unknown]
